FAERS Safety Report 5283299-1 (Version None)
Quarter: 2007Q1

REPORT INFORMATION
  Report Type: 
  Country: None (occurrence: None)
  Receive Date: 20070328
  Receipt Date: 20070328
  Transmission Date: 20070707
  Serious: No
  Sender: FDA-Public Use
  Company Number: None

PATIENT
  Age: 43 Year
  Sex: Male
  Weight: 56 kg

DRUGS (2)
  1. ROSIGLITAZONE [Suspect]
     Dosage: 4 MG QD
     Dates: start: 20061221, end: 20061228
  2. NPH ILETIN II [Concomitant]

REACTIONS (2)
  - LOCALISED OEDEMA [None]
  - OEDEMA PERIPHERAL [None]
